FAERS Safety Report 9985853 (Version 1)
Quarter: 2014Q1

REPORT INFORMATION
  Report Type: Spontaneous
  Country: US (occurrence: US)
  Receive Date: 20140307
  Receipt Date: 20140307
  Transmission Date: 20141002
  Serious: No
  Sender: FDA-Public Use
  Company Number: US-ABBVIE-13P-163-1085212-00

PATIENT
  Age: 51 Year
  Sex: Female
  Weight: 79 kg

DRUGS (3)
  1. HUMIRA [Suspect]
     Indication: RHEUMATOID ARTHRITIS
  2. ENALAPRIL [Concomitant]
     Indication: BLOOD PRESSURE
  3. XANAX [Concomitant]
     Indication: ANXIETY

REACTIONS (2)
  - Local swelling [Not Recovered/Not Resolved]
  - Musculoskeletal discomfort [Unknown]
